FAERS Safety Report 7505705-1 (Version None)
Quarter: 2011Q2

REPORT INFORMATION
  Report Type: 
  Country: None (occurrence: None)
  Receive Date: 20110526
  Receipt Date: 20110520
  Transmission Date: 20111010
  Serious: Yes (Other)
  Sender: FDA-Public Use
  Company Number: US-PFIZER INC-2011109515

PATIENT
  Sex: Female
  Weight: 53.515 kg

DRUGS (1)
  1. ZYVOX [Suspect]
     Indication: URINARY TRACT INFECTION
     Dosage: UNK
     Route: 048
     Dates: start: 20110519

REACTIONS (3)
  - COLON CANCER [None]
  - NEOPLASM [None]
  - NAUSEA [None]
